FAERS Safety Report 13697611 (Version 1)
Quarter: 2017Q2

REPORT INFORMATION
  Report Type: Spontaneous
  Country: JP (occurrence: JP)
  Receive Date: 20170628
  Receipt Date: 20170628
  Transmission Date: 20170830
  Serious: Yes (Death, Other)
  Sender: FDA-Public Use
  Company Number: JP-PFIZER INC-2017262478

PATIENT
  Age: 71 Year
  Sex: Male

DRUGS (13)
  1. PREDNISOLONE. [Concomitant]
     Active Substance: PREDNISOLONE
     Indication: POLYCHONDRITIS
     Dosage: 20 MG, DAILY
  2. PREDNISOLONE. [Concomitant]
     Active Substance: PREDNISOLONE
     Dosage: 30 MG, DAILY
     Route: 048
  3. SITAFLOXACIN [Concomitant]
     Active Substance: SITAFLOXACIN
     Indication: ATYPICAL MYCOBACTERIAL INFECTION
     Dosage: UNK
  4. PREDNISOLONE. [Concomitant]
     Active Substance: PREDNISOLONE
     Indication: RASH
     Dosage: 10 MG, DAILY
  5. CLARITHROMYCIN. [Concomitant]
     Active Substance: CLARITHROMYCIN
     Indication: METASTASES TO LYMPH NODES
     Dosage: UNK
  6. METHYLPREDNISOLONE SODIUM SUCCINATE. [Suspect]
     Active Substance: METHYLPREDNISOLONE SODIUM SUCCINATE
     Dosage: 250 MG, DAILY
  7. TACROLIMUS. [Concomitant]
     Active Substance: TACROLIMUS
     Indication: POLYCHONDRITIS
     Dosage: UNK
  8. ETHAMBUTOL HYDROCHLORIDE. [Concomitant]
     Active Substance: ETHAMBUTOL HYDROCHLORIDE
     Indication: METASTASES TO LYMPH NODES
     Dosage: UNK
  9. RIFAMPICIN [Concomitant]
     Active Substance: RIFAMPIN
     Indication: METASTASES TO LYMPH NODES
     Dosage: UNK
  10. STREPTOMYCIN SULFATE. [Concomitant]
     Active Substance: STREPTOMYCIN SULFATE
     Indication: ATYPICAL MYCOBACTERIAL INFECTION
     Dosage: UNK
  11. METHYLPREDNISOLONE SODIUM SUCCINATE. [Suspect]
     Active Substance: METHYLPREDNISOLONE SODIUM SUCCINATE
     Indication: RASH
     Dosage: 500 MG, DAILY
  12. PREDNISOLONE. [Concomitant]
     Active Substance: PREDNISOLONE
     Dosage: 25 TO 30 MG/DAY
     Route: 048
  13. ADALIMUMAB [Concomitant]
     Active Substance: ADALIMUMAB
     Indication: POLYCHONDRITIS
     Dosage: UNK

REACTIONS (1)
  - Pneumonia bacterial [Unknown]
